FAERS Safety Report 4764502-0 (Version None)
Quarter: 2005Q3

REPORT INFORMATION
  Report Type: 
  Country: None (occurrence: None)
  Receive Date: 20050906
  Receipt Date: 20050826
  Transmission Date: 20060218
  Serious: Yes (Hospitalization, Other)
  Sender: FDA-Public Use
  Company Number: KII-2005-0018351

PATIENT
  Age: 55 Year
  Sex: Male

DRUGS (11)
  1. OXYCONTIN [Suspect]
     Indication: PAIN
     Dosage: ORAL
     Route: 048
  2. CARISOPRODOL [Suspect]
     Dosage: SEE TEXT, ORAL
     Route: 048
  3. ACETAMINOPHEN AND HYDROCODONE BITARTRATE [Suspect]
     Dosage: SEE TEXT, ORAL
     Route: 048
  4. ACETAMINOPHEN WITH DIPHENHYDRAMINE () [Suspect]
     Dosage: SEE TEXT, ORAL
     Route: 048
  5. NSAID'S () [Suspect]
  6. ANTIBIOTICS () [Suspect]
  7. GASTROINTESTINAL PREPARATION () [Suspect]
  8. VITAMIN B12 [Suspect]
  9. MULTIPLE VITAMINS (ERGOCALCIFEROL, ASCORBIC ACID, TOCOPHEROL, FOLIC AC [Suspect]
  10. ANTIGLAUCOMA PREPARATIONS AND MIOTICS () [Suspect]
  11. BENZODIAZEPINE DERIVATIVES () [Suspect]

REACTIONS (16)
  - ALANINE AMINOTRANSFERASE INCREASED [None]
  - ASPARTATE AMINOTRANSFERASE INCREASED [None]
  - BLOOD ALKALINE PHOSPHATASE INCREASED [None]
  - BLOOD GLUCOSE DECREASED [None]
  - BLOOD GLUCOSE INCREASED [None]
  - BLOOD PH DECREASED [None]
  - BLOOD PRESSURE DECREASED [None]
  - CONFUSIONAL STATE [None]
  - DEHYDRATION [None]
  - ELECTROCARDIOGRAM QT CORRECTED INTERVAL PROLONGED [None]
  - MENTAL STATUS CHANGES [None]
  - MULTIPLE DRUG OVERDOSE [None]
  - PROTHROMBIN TIME PROLONGED [None]
  - RESPIRATORY RATE DECREASED [None]
  - SINUS TACHYCARDIA [None]
  - SOMNOLENCE [None]
